FAERS Safety Report 9222322 (Version 1)
Quarter: 2013Q1

REPORT INFORMATION
  Report Type: Spontaneous
  Country: US (occurrence: None)
  Receive Date: 20120914
  Receipt Date: 20120914
  Transmission Date: 20140127
  Serious: Yes (Hospitalization, Other)
  Sender: FDA-Public Use
  Company Number: JPI-P-016023

PATIENT
  Age: 58 Year
  Sex: Female
  Weight: 127.01 kg

DRUGS (10)
  1. XYREM ?(500 MILLIGRAM/MILLILITERS, SOLUTION)(SODIUM OXYBATE) [Suspect]
     Indication: CATAPLEXY
     Dosage: 3 GM (1.5 GM,2 IN 1 D)
     Route: 048
     Dates: start: 20071010
  2. XYREM ?(500 MILLIGRAM/MILLILITERS, SOLUTION)(SODIUM OXYBATE) [Suspect]
     Indication: SOMNOLENCE
     Dosage: 3 GM (1.5 GM,2 IN 1 D)
     Route: 048
     Dates: start: 20071010
  3. DULOXETINE HYDROCHLORIDE [Concomitant]
  4. MODAFINIL [Concomitant]
  5. PREGABALIN [Concomitant]
  6. LISINOPRIL [Concomitant]
  7. SUMATRIPTAN SUCCINATE [Concomitant]
  8. CALCIUM [Concomitant]
  9. VITAMIN [Concomitant]
  10. IBUPROFEN [Concomitant]

REACTIONS (5)
  - Depression [None]
  - Poor quality sleep [None]
  - Initial insomnia [None]
  - Middle insomnia [None]
  - Nightmare [None]
